FAERS Safety Report 9929955 (Version 1)
Quarter: 2014Q1

REPORT INFORMATION
  Report Type: Spontaneous
  Country: US (occurrence: US)
  Receive Date: 20140227
  Receipt Date: 20140227
  Transmission Date: 20141002
  Serious: Yes (Other)
  Sender: FDA-Public Use
  Company Number: PHHY2014US022507

PATIENT
  Sex: Female

DRUGS (16)
  1. FLUOXETINE [Suspect]
     Dosage: FETAL DRUG EXPOSURE VIA FATHER
     Route: 065
  2. CITALOPRAM [Suspect]
     Dosage: FETAL DRUG EXPOSURE VIA FATHER
     Route: 065
  3. ESCITALOPRAM [Suspect]
     Dosage: FETAL DRUG EXPOSURE VIA FATHER
     Route: 065
  4. SERTRALINE [Suspect]
     Dosage: FETAL DRUG EXPOSURE VIA FATHER
     Route: 065
  5. BUPROPION [Suspect]
     Dosage: FETAL DRUG EXPOSURE VIA FATHER
     Route: 065
  6. OLANZAPINE [Suspect]
     Dosage: FETAL DRUG EXPOSURE VIA FATHER
     Route: 065
  7. AMITRIPTYLINE [Suspect]
     Dosage: FETAL DRUG EXPOSURE VIA FATHER
     Route: 065
  8. VALPROIC ACID [Suspect]
     Dosage: FETAL DRUG EXPOSURE VIA FATHER
     Route: 065
  9. VENLAFAXINE [Suspect]
     Dosage: FETAL DRUG EXPOSURE VIA FATHER
     Route: 065
  10. RISPERIDONE [Suspect]
     Dosage: FETAL DRUG EXPOSURE VIA FATHER
     Route: 065
  11. ZOLPIDEM [Suspect]
     Dosage: FETAL DRUG EXPOSURE VIA FATHER
     Route: 065
  12. QUETIAPINE [Suspect]
     Dosage: FETAL DRUG EXPOSURE VIA FATHER
     Route: 065
  13. TRAZODONE [Suspect]
     Dosage: FETAL DRUG EXPOSURE VIA FATHER
     Route: 065
  14. DIPHENHYDRAMINE [Suspect]
     Dosage: FETAL DRUG EXPOSURE VIA FATHER
     Route: 065
  15. PRAZOSIN [Suspect]
     Dosage: FETAL DRUG EXPOSURE VIA FATHER
     Route: 065
  16. ESZOPICLONE [Suspect]
     Dosage: FETAL DRUG EXPOSURE VIA FATHER
     Route: 065

REACTIONS (4)
  - Psychiatric symptom [Unknown]
  - Frustration [Unknown]
  - Fatigue [Unknown]
  - Exposure via father [Unknown]
